FAERS Safety Report 5732073-8 (Version None)
Quarter: 2008Q2

REPORT INFORMATION
  Report Type: 
  Country: None (occurrence: None)
  Receive Date: 20080506
  Receipt Date: 20080430
  Transmission Date: 20081010
  Serious: Yes (Death)
  Sender: FDA-Public Use
  Company Number: 144-C5013-07101161

PATIENT
  Age: 76 Year
  Sex: Male
  Weight: 75 kg

DRUGS (13)
  1. CC-5013 (LENALIDOMIDE) (CAPSULES) [Suspect]
     Indication: MULTIPLE MYELOMA
     Dosage: 25 MG, DAILY, ORAL
     Route: 048
     Dates: start: 20070828, end: 20071006
  2. DEXAMETHASONE TAB [Suspect]
     Indication: MULTIPLE MYELOMA
     Dosage: 40 MG, 3 PULSES, ORAL
     Route: 048
     Dates: start: 20070828, end: 20071005
  3. ACETYLSALICYLIC ACID SRT [Concomitant]
  4. PRIMPERAN TAB [Concomitant]
  5. ACETAMINOPHEN [Concomitant]
  6. PANTOPRAZOLE SODIUM [Concomitant]
  7. DUROGESIC (FENTANYL) (POULTICE OR PATCH) [Concomitant]
  8. ENOXAPARIN SODIUM [Concomitant]
  9. VALIUM [Concomitant]
  10. GLUCOSALINE (SALINE MIXTURE) [Concomitant]
  11. HALOPERIDOL (HALOPERIDOL) (AMPOULES) [Concomitant]
  12. MORPHINE [Concomitant]
  13. DEXTROSTIX (DEXTROSIN) [Concomitant]

REACTIONS (4)
  - BLOOD CREATININE INCREASED [None]
  - CARDIAC FAILURE [None]
  - CEREBRAL HAEMORRHAGE [None]
  - THROMBOCYTOPENIA [None]
